FAERS Safety Report 14835168 (Version 2)
Quarter: 2018Q2

REPORT INFORMATION
  Report Type: Spontaneous
  Country: IN (occurrence: IN)
  Receive Date: 20180502
  Receipt Date: 20180502
  Transmission Date: 20180711
  Serious: Yes (Other)
  Sender: FDA-Public Use
  Company Number: PHHY2018IN069153

PATIENT
  Age: 10 Year
  Sex: Male

DRUGS (2)
  1. PREDNISOLONE. [Suspect]
     Active Substance: PREDNISOLONE
     Indication: LEFT VENTRICULAR DYSFUNCTION
  2. PREDNISOLONE. [Suspect]
     Active Substance: PREDNISOLONE
     Indication: CARDITIS
     Dosage: 60 MG, QD (2 MG/KG)
     Route: 048

REACTIONS (2)
  - Hypertension [Recovered/Resolved]
  - Overdose [Unknown]
